FAERS Safety Report 18581830 (Version 1)
Quarter: 2020Q4

REPORT INFORMATION
  Report Type: Spontaneous
  Country: US (occurrence: US)
  Receive Date: 20201203
  Receipt Date: 20201203
  Transmission Date: 20210114
  Serious: Yes (Other)
  Sender: FDA-Public Use
  Company Number: None

PATIENT
  Age: 11 Year
  Sex: Female
  Weight: 47.52 kg

DRUGS (1)
  1. MONTELUKAST [Suspect]
     Active Substance: MONTELUKAST SODIUM
     Indication: ASTHMA
     Dates: start: 20200204, end: 20201118

REACTIONS (6)
  - Vomiting [None]
  - Asthenia [None]
  - Nausea [None]
  - Seizure [None]
  - Neuropsychiatric symptoms [None]
  - Dizziness [None]

NARRATIVE: CASE EVENT DATE: 20201016
